FAERS Safety Report 9302193 (Version 2)
Quarter: 2013Q4

REPORT INFORMATION
  Report Type: Spontaneous
  Country: US (occurrence: US)
  Receive Date: 20130522
  Receipt Date: 20131108
  Transmission Date: 20140711
  Serious: Yes (Hospitalization)
  Sender: FDA-Public Use
  Company Number: US-B.I. PHARMACEUTICALS,INC./RIDGEFIELD-2013-BI-14114BP

PATIENT
  Age: 56 Year
  Sex: Female
  Weight: 65.1 kg

DRUGS (14)
  1. PRADAXA [Suspect]
     Indication: ANTICOAGULANT THERAPY
     Dosage: 150 MG
     Dates: start: 20120525, end: 20120618
  2. GLIMEPIRIDE [Concomitant]
     Dosage: 1 MG
  3. CARVEDILOL [Concomitant]
     Dosage: 50 MG
  4. FUROSEMIDE [Concomitant]
     Dosage: 40 MG
  5. ASPIRIN [Concomitant]
     Dosage: 81 MG
  6. ALPRAZOLAM [Concomitant]
     Dosage: 0.5 MG
  7. GABAPENTIN [Concomitant]
     Dosage: 300 MG
  8. ISOSORBIDE MONONITRATE [Concomitant]
     Dosage: 15 MG
  9. NIFEDIPINE [Concomitant]
     Dosage: 30 MG
  10. OMEPRAZOLE [Concomitant]
     Dosage: 20 MG
  11. SERTRALINE [Concomitant]
     Dosage: 50 MG
  12. THERAGRAN [Concomitant]
  13. TRAMADOL [Concomitant]
     Dosage: 100 MG
  14. SIMVASTATIN [Concomitant]
     Dosage: 20 MG

REACTIONS (2)
  - Gastrointestinal haemorrhage [Unknown]
  - Anaemia [Unknown]
